FAERS Safety Report 19293959 (Version 1)
Quarter: 2021Q2

REPORT INFORMATION
  Report Type: Spontaneous
  Country: US (occurrence: US)
  Receive Date: 20210524
  Receipt Date: 20210524
  Transmission Date: 20210717
  Serious: Yes (Hospitalization)
  Sender: FDA-Public Use
  Company Number: None

PATIENT
  Age: 43 Year
  Sex: Female

DRUGS (18)
  1. HYDROCO/APAP [Concomitant]
     Active Substance: ACETAMINOPHEN\HYDROCODONE
  2. MEDROL [Concomitant]
     Active Substance: METHYLPREDNISOLONE
  3. OXYBUTYNIN. [Concomitant]
     Active Substance: OXYBUTYNIN CHLORIDE
  4. ENBREL [Suspect]
     Active Substance: ETANERCEPT
     Indication: RHEUMATOID ARTHRITIS
     Route: 058
     Dates: start: 20210429
  5. CEPHALEXIN. [Concomitant]
     Active Substance: CEPHALEXIN
  6. ALBUTEROL HFA [Concomitant]
     Active Substance: ALBUTEROL SULFATE
  7. DOXYCYC MONO [Concomitant]
     Active Substance: DOXYCYCLINE
  8. DOXYCYCL HYC [Concomitant]
     Active Substance: DOXYCYCLINE HYCLATE
  9. PHENAZOPYRID [Concomitant]
  10. TRIAMCINOLON CRE [Concomitant]
  11. CELECOXIB. [Concomitant]
     Active Substance: CELECOXIB
  12. PANTOPRAZOLE [Concomitant]
     Active Substance: PANTOPRAZOLE
  13. DICLOFEN POT [Concomitant]
  14. NABUMETONE. [Concomitant]
     Active Substance: NABUMETONE
  15. ONDANSETRON [Concomitant]
     Active Substance: ONDANSETRON
  16. IBUPROFEN. [Concomitant]
     Active Substance: IBUPROFEN
  17. LEVALBUTEROL ACT [Concomitant]
  18. TAMSULOSIN [Concomitant]
     Active Substance: TAMSULOSIN

REACTIONS (3)
  - Post procedural complication [None]
  - Renal stone removal [None]
  - Pleural effusion [None]

NARRATIVE: CASE EVENT DATE: 202104
